FAERS Safety Report 5080311-X (Version None)
Quarter: 2006Q3

REPORT INFORMATION
  Report Type: 
  Country: None (occurrence: None)
  Receive Date: 20060815
  Receipt Date: 20060804
  Transmission Date: 20061208
  Serious: Yes (Hospitalization, Other)
  Sender: FDA-Public Use
  Company Number: CA-JNJFOC-20060801781

PATIENT
  Sex: Male
  Weight: 2.63 kg

DRUGS (5)
  1. REMICADE [Suspect]
     Route: 015
  2. REMICADE [Suspect]
     Indication: DRUG EXPOSURE DURING PREGNANCY
     Route: 015
  3. PREDNISONE [Concomitant]
     Route: 048
     Dates: start: 20060201
  4. PRE-NATAL SUPPLEMENT [Concomitant]
     Indication: PREGNANCY
     Route: 048
     Dates: start: 20060101
  5. IRON SUPPLEMENT [Concomitant]
     Route: 048

REACTIONS (2)
  - FEEDING DISORDER NEONATAL [None]
  - PREMATURE LABOUR [None]
